FAERS Safety Report 12989527 (Version 1)
Quarter: 2016Q4

REPORT INFORMATION
  Report Type: Spontaneous
  Country: US (occurrence: US)
  Receive Date: 20161201
  Receipt Date: 20161201
  Transmission Date: 20170207
  Serious: Yes (Other)
  Sender: FDA-Public Use
  Company Number: US-CLINIGEN GROUP PLC/ CLINIGEN HEALTHCARE LTD-E2B_00001385

PATIENT
  Age: 64 Year
  Sex: Female
  Weight: 79.4 kg

DRUGS (8)
  1. NORVASC [Concomitant]
     Active Substance: AMLODIPINE BESYLATE
  2. VIOXX [Concomitant]
     Active Substance: ROFECOXIB
  3. LIPITOR [Concomitant]
     Active Substance: ATORVASTATIN CALCIUM
  4. TAXOL [Concomitant]
     Active Substance: PACLITAXEL
     Indication: CHEMOTHERAPY
  5. CISPLATIN. [Concomitant]
     Active Substance: CISPLATIN
     Indication: CHEMOTHERAPY
  6. CLARITIN [Concomitant]
     Active Substance: LORATADINE
  7. ETHYOL [Suspect]
     Active Substance: AMIFOSTINE
     Indication: RADIOTHERAPY
     Dosage: QD
     Route: 058
     Dates: start: 20031120, end: 20031126
  8. COMPAZINE [Concomitant]
     Active Substance: PROCHLORPERAZINE MALEATE

REACTIONS (2)
  - Neutropenia [Recovered/Resolved]
  - Rash [Recovered/Resolved]

NARRATIVE: CASE EVENT DATE: 20031128
